FAERS Safety Report 6075534-7 (Version None)
Quarter: 2009Q1

REPORT INFORMATION
  Report Type: 
  Country: None (occurrence: None)
  Receive Date: 20090209
  Receipt Date: 20090127
  Transmission Date: 20090719
  Serious: Yes (Hospitalization)
  Sender: FDA-Public Use
  Company Number: TRP_06060_2009

PATIENT
  Sex: Male
  Weight: 89.3586 kg

DRUGS (7)
  1. INFERGEN [Suspect]
     Indication: HEPATITIS C
     Dosage: 15 UG QD; SUBCUTANEOUS
     Route: 058
     Dates: start: 20080614
  2. RIBAVIRIN [Suspect]
     Indication: HEPATITIS C
     Dosage: 600 MG, BID; ORAL
     Route: 048
     Dates: start: 20080614
  3. HYDROCHLOROTHIAZIDE [Concomitant]
  4. THERAMINE [Concomitant]
  5. QUINAPRIL [Concomitant]
  6. METOPROLOL TARTRATE [Concomitant]
  7. WARFARIN SODIUM [Concomitant]

REACTIONS (3)
  - ARTHRALGIA [None]
  - DEEP VEIN THROMBOSIS [None]
  - FATIGUE [None]
